FAERS Safety Report 7318023-1 (Version None)
Quarter: 2011Q1

REPORT INFORMATION
  Report Type: 
  Country: None (occurrence: None)
  Receive Date: 20110227
  Receipt Date: 20110218
  Transmission Date: 20110831
  Serious: Yes (Hospitalization)
  Sender: FDA-Public Use
  Company Number: TR-BRISTOL-MYERS SQUIBB COMPANY-15551955

PATIENT
  Age: 63 Year
  Sex: Male

DRUGS (3)
  1. WARFARIN SODIUM [Interacting]
     Indication: ATRIAL FIBRILLATION
  2. LEFLUNOMIDE [Interacting]
     Indication: RHEUMATOID ARTHRITIS
  3. WARFARIN SODIUM [Suspect]
     Indication: EMBOLISM ARTERIAL

REACTIONS (5)
  - MENINGITIS [None]
  - ABDOMINAL ABSCESS [None]
  - GASTROINTESTINAL HAEMORRHAGE [None]
  - SYSTEMIC CANDIDA [None]
  - DRUG INTERACTION [None]
